FAERS Safety Report 5737981-X (Version None)
Quarter: 2008Q2

REPORT INFORMATION
  Report Type: 
  Country: None (occurrence: None)
  Receive Date: 20080509
  Receipt Date: 20080502
  Transmission Date: 20081010
  Serious: Yes (Other)
  Sender: FDA-Public Use
  Company Number: LTI2008A00143

PATIENT
  Age: 58 Year
  Sex: Male

DRUGS (2)
  1. COMPETACT      (PIOGLITAZONE HYDROCHLORIDE,METFORMIN HYDROCHLORIDE) [Suspect]
     Indication: TYPE 2 DIABETES MELLITUS
     Dosage: 2 TAB. (1 TAB.,2 IN 1 D), ORAL
     Route: 048
     Dates: end: 20080101
  2. VITAMIN K ANTAGONIST        (VIT K ANTAGONISTS) [Concomitant]

REACTIONS (1)
  - PULMONARY ARTERIAL HYPERTENSION [None]
